FAERS Safety Report 9813596 (Version 2)
Quarter: 2014Q1

REPORT INFORMATION
  Report Type: Report from Study
  Country: JP (occurrence: JP)
  Receive Date: 20140113
  Receipt Date: 20140221
  Transmission Date: 20141002
  Serious: Yes (Death)
  Sender: FDA-Public Use
  Company Number: JP-TAKEDA-2014TJP000458

PATIENT
  Age: 73 Year
  Sex: Female
  Weight: 47 kg

DRUGS (5)
  1. PIOGLITAZONE, GLIMEPIRIDE [Suspect]
     Indication: TYPE 2 DIABETES MELLITUS
     Dosage: 1 DF, QD
     Route: 048
     Dates: start: 20120712, end: 20130305
  2. JANUVIA [Concomitant]
     Indication: TYPE 2 DIABETES MELLITUS
     Dosage: 50 MG, 1 DAYS
     Route: 048
     Dates: start: 20120119, end: 20130305
  3. MUCODYNE [Concomitant]
     Dosage: UNK
     Route: 048
  4. TRICOR                             /00499301/ [Concomitant]
     Dosage: UNK
     Route: 048
  5. PREDNISOLONE [Concomitant]
     Dosage: UNK
     Route: 048

REACTIONS (1)
  - Road traffic accident [Fatal]
